FAERS Safety Report 7996929 (Version 2)
Quarter: 2013Q4

REPORT INFORMATION
  Report Type: Spontaneous
  Country: US (occurrence: US)
  Receive Date: 20110618
  Receipt Date: 20131119
  Transmission Date: 20140711
  Serious: Yes (Other)
  Sender: FDA-Public Use
  Company Number: US-BAYER-2011-051051

PATIENT
  Age: 18 Year
  Sex: Female

DRUGS (8)
  1. YAZ [Suspect]
     Dosage: 1 DF, QD
     Route: 048
     Dates: start: 2006, end: 2007
  2. YASMIN [Suspect]
     Dosage: 1 DF, QD
     Route: 048
     Dates: start: 2006, end: 2007
  3. ADVAIR [Concomitant]
  4. NEXIUM [Concomitant]
     Dosage: 20 MG, UNK
  5. SULFAMETHOXAZOLE W/TRIMETHOPRIM [Concomitant]
  6. ZYRTEC [Concomitant]
     Dosage: 10 MG, UNK
  7. SINGULAIR [Concomitant]
     Dosage: 10 MG, UNK
  8. MAXAIR [Concomitant]

REACTIONS (4)
  - Gallbladder disorder [None]
  - Pain [Unknown]
  - Anxiety [None]
  - Cholecystitis chronic [None]
